FAERS Safety Report 4974840-4 (Version None)
Quarter: 2006Q1

REPORT INFORMATION
  Report Type: 
  Country: None (occurrence: None)
  Receive Date: 20060227
  Receipt Date: 20050617
  Transmission Date: 20060701
  Serious: Yes (Death)
  Sender: FDA-Public Use
  Company Number: 05P-163-0303462-00

PATIENT
  Age: 36 Year
  Sex: Male

DRUGS (3)
  1. VICODIN(HYDROCODONE /  ACERTAMINOPHEN (HYDROCODONE / ACETAMINOPHEN) [Suspect]
     Indication: BACK PAIN
     Dosage: 20 MG, 8 IN 1 D, PER ORAL
     Route: 048
     Dates: start: 20000101, end: 20031206
  2. FENTANYL [Concomitant]
  3. UNSPECIFIED ANTI-DEPRESSANT [Concomitant]

REACTIONS (1)
  - OVERDOSE [None]
